FAERS Safety Report 6067523-3 (Version None)
Quarter: 2009Q1

REPORT INFORMATION
  Report Type: 
  Country: None (occurrence: None)
  Receive Date: 20090205
  Receipt Date: 20090126
  Transmission Date: 20090719
  Serious: Yes (Death)
  Sender: FDA-Public Use
  Company Number: CA-SANOFI-SYNTHELABO-A01200900817

PATIENT

DRUGS (4)
  1. AVASTIN [Concomitant]
  2. FOLINIC ACID [Concomitant]
  3. FLUOROURACIL [Concomitant]
  4. ELOXATIN [Suspect]

REACTIONS (2)
  - HEPATIC CIRRHOSIS [None]
  - LIVER DISORDER [None]
